FAERS Safety Report 18604378 (Version 1)
Quarter: 2020Q4

REPORT INFORMATION
  Report Type: Spontaneous
  Country: FR (occurrence: FR)
  Receive Date: 20201211
  Receipt Date: 20201211
  Transmission Date: 20210114
  Serious: Yes (Other)
  Sender: FDA-Public Use
  Company Number: FR-MICRO LABS LIMITED-ML2020-03652

PATIENT
  Age: 62 Year
  Sex: Female

DRUGS (11)
  1. TINZAPARIN [Concomitant]
     Active Substance: TINZAPARIN
  2. METFORMIN [Concomitant]
     Active Substance: METFORMIN HYDROCHLORIDE
  3. PARACETAMOL [Concomitant]
     Active Substance: ACETAMINOPHEN
  4. EVEROLIMUS. [Suspect]
     Active Substance: EVEROLIMUS
     Dates: start: 20170928, end: 20171012
  5. EVEROLIMUS. [Suspect]
     Active Substance: EVEROLIMUS
     Dates: start: 20171023
  6. TRAMADOL. [Concomitant]
     Active Substance: TRAMADOL
  7. TELMISARTAN. [Concomitant]
     Active Substance: TELMISARTAN
  8. DESLORATADINE. [Concomitant]
     Active Substance: DESLORATADINE
  9. VERAPAMIL HYDROCHLORIDE. [Suspect]
     Active Substance: VERAPAMIL HYDROCHLORIDE
  10. LEVOTHYROXINE. [Concomitant]
     Active Substance: LEVOTHYROXINE
  11. FLUTICASONE. [Concomitant]
     Active Substance: FLUTICASONE

REACTIONS (2)
  - Stomatitis [Recovering/Resolving]
  - Drug interaction [Unknown]

NARRATIVE: CASE EVENT DATE: 2017
